FAERS Safety Report 6103657-2 (Version None)
Quarter: 2009Q1

REPORT INFORMATION
  Report Type: 
  Country: None (occurrence: None)
  Receive Date: 20090227
  Receipt Date: 20090205
  Transmission Date: 20090719
  Serious: Yes (Death, Life-Threatening)
  Sender: FDA-Public Use
  Company Number: 2009EU000597

PATIENT
  Age: 31 Year
  Sex: Male

DRUGS (10)
  1. PROGRAF [Suspect]
     Indication: HEART TRANSPLANT
     Dosage: 2MG, BID, ORAL
     Route: 048
  2. IMMUNE GLOBULIN (HUMAN) [Suspect]
     Indication: TRANSPLANT REJECTION
     Dosage: 30 G, TOTAL DOSE, IV NOS
     Route: 042
     Dates: start: 20090106, end: 20090107
  3. BACTRIM [Suspect]
     Indication: HEART TRANSPLANT REJECTION
     Dosage: 1 DF, UNKNOWN/D, ORAL
     Route: 048
     Dates: start: 20090106
  4. CELLCEPT [Suspect]
     Indication: HEART TRANSPLANT
     Dosage: 1 MG, BID, ORAL
     Route: 048
  5. SOLUPRED(PREDNISILONE SODIUM SULFOBENZOATE) [Suspect]
     Indication: HEART TRANSPLANT
     Dosage: 10 MG, UNKNOWN/D, ORAL
     Route: 048
  6. PLAVIX [Suspect]
     Indication: COMPLICATIONS OF TRANSPLANTED HEART
     Dosage: 75 MG, UNKNOWN/D, ORAL
     Route: 048
  7. BISOPROLOL FUMARATE [Concomitant]
  8. RAMIPRIL [Concomitant]
  9. KARDEGIC (ACETYLSALICYLATE LYSINE) [Concomitant]
  10. VASTEN (AMLODIPINE BESILATE) [Concomitant]

REACTIONS (4)
  - CARDIO-RESPIRATORY ARREST [None]
  - MALAISE [None]
  - NAUSEA [None]
  - VOMITING [None]
